FAERS Safety Report 5874417-2 (Version None)
Quarter: 2008Q3

REPORT INFORMATION
  Report Type: 
  Country: None (occurrence: None)
  Receive Date: 20080908
  Receipt Date: 20080827
  Transmission Date: 20090109
  Serious: Yes (Other)
  Sender: FDA-Public Use
  Company Number: FR-PFIZER INC-2008072481

PATIENT
  Sex: Female

DRUGS (10)
  1. SOLU-MEDROL [Suspect]
     Route: 042
     Dates: start: 20080618, end: 20080618
  2. PREVISCAN [Interacting]
     Route: 048
     Dates: start: 20080101, end: 20080620
  3. PACLITAXEL [Interacting]
     Route: 042
     Dates: start: 20080618, end: 20080618
  4. RANITIDINE [Interacting]
     Route: 042
     Dates: start: 20080618, end: 20080618
  5. ENALAPRIL MALEATE [Concomitant]
     Dates: start: 20080301
  6. AMIODARONE HCL [Concomitant]
     Dates: start: 20080301
  7. CARVEDILOL [Concomitant]
     Dates: start: 20060101
  8. SIMVASTATIN [Concomitant]
     Dates: end: 20080527
  9. HEPARIN CALCIUM [Concomitant]
     Dates: start: 20080301, end: 20080101
  10. DOCETAXEL [Concomitant]
     Dates: start: 20080522, end: 20080101

REACTIONS (2)
  - DRUG INTERACTION [None]
  - INTERNATIONAL NORMALISED RATIO INCREASED [None]
